FAERS Safety Report 20909236 (Version 1)
Quarter: 2022Q2

REPORT INFORMATION
  Report Type: Other
  Country: US (occurrence: None)
  Receive Date: 20220603
  Receipt Date: 20220603
  Transmission Date: 20220721
  Serious: No
  Sender: FDA-Public Use
  Company Number: US-ROCHE-3102692

PATIENT
  Sex: Female

DRUGS (1)
  1. OCREVUS [Suspect]
     Active Substance: OCRELIZUMAB
     Indication: Multiple sclerosis
     Dosage: DOT: 08-MAR-2022, 20-DEC-2018
     Route: 042
     Dates: start: 20180605

REACTIONS (2)
  - Tooth disorder [Unknown]
  - JC polyomavirus test positive [Unknown]
